FAERS Safety Report 10109161 (Version 1)
Quarter: 2014Q2

REPORT INFORMATION
  Report Type: Spontaneous
  Country: FR (occurrence: None)
  Receive Date: 20140423
  Receipt Date: 20140423
  Transmission Date: 20141212
  Serious: Yes (Hospitalization)
  Sender: FDA-Public Use
  Company Number: AXC-2014-000277

PATIENT
  Age: 25 Year
  Sex: Male

DRUGS (1)
  1. PYLERA [Suspect]
     Indication: HELICOBACTER INFECTION
     Route: 048
     Dates: start: 20140206, end: 201402

REACTIONS (2)
  - Livedo reticularis [None]
  - Rash [None]
